FAERS Safety Report 6338953-7 (Version None)
Quarter: 2009Q3

REPORT INFORMATION
  Report Type: 
  Country: None (occurrence: None)
  Receive Date: 20090831
  Receipt Date: 20090616
  Transmission Date: 20100115
  Serious: Yes (Hospitalization)
  Sender: FDA-Public Use
  Company Number: KV200900189

PATIENT
  Age: 74 Year
  Sex: Female

DRUGS (9)
  1. METOPROLOL SUCCINATE [Suspect]
     Indication: CARDIAC DISORDER
     Dosage: 200 MG, QD, ORAL
     Route: 048
     Dates: start: 20081217
  2. IMDUR [Concomitant]
  3. CLONAZEPAM [Concomitant]
  4. METFORMIN ER (METFORMIN HYDROCHLORIDE) [Concomitant]
  5. GLIPIZIDE [Concomitant]
  6. TRICOR [Concomitant]
  7. PRAVASTATIN [Concomitant]
  8. FAMOTIDINE [Concomitant]
  9. TRIAMTERENE AND HYDROCHLOROTHIAZIDE [Concomitant]

REACTIONS (8)
  - CHEST PAIN [None]
  - EPIGASTRIC DISCOMFORT [None]
  - EXTRASYSTOLES [None]
  - FEELING ABNORMAL [None]
  - MUSCULOSKELETAL PAIN [None]
  - NASOPHARYNGITIS [None]
  - OROPHARYNGEAL PAIN [None]
  - PALPITATIONS [None]
